FAERS Safety Report 6104625-7 (Version None)
Quarter: 2009Q1

REPORT INFORMATION
  Report Type: 
  Country: None (occurrence: None)
  Receive Date: 20090304
  Receipt Date: 20090218
  Transmission Date: 20090719
  Serious: Yes (Other)
  Sender: FDA-Public Use
  Company Number: 8043316

PATIENT
  Age: 14 Year
  Sex: Female
  Weight: 38.1 kg

DRUGS (7)
  1. KEPPRA [Suspect]
     Indication: CONVULSION
     Dosage: 500 MG 2/D PO
     Route: 048
  2. BACLOFEN [Concomitant]
  3. FLUCONAZOLE [Concomitant]
  4. SINEMET [Concomitant]
  5. MIRALAX [Concomitant]
  6. BACTRIM [Concomitant]
  7. TIZANIDINE HCL [Concomitant]

REACTIONS (1)
  - RENAL IMPAIRMENT [None]
